FAERS Safety Report 4947685-9 (Version None)
Quarter: 2006Q1

REPORT INFORMATION
  Report Type: 
  Country: None (occurrence: None)
  Receive Date: 20060313
  Receipt Date: 20060228
  Transmission Date: 20060701
  Serious: Yes (Hospitalization)
  Sender: FDA-Public Use
  Company Number: PAR_0536_2006

PATIENT
  Age: 59 Year
  Sex: Male

DRUGS (5)
  1. IBUPROFEN [Suspect]
     Indication: TOOTHACHE
     Dosage: 400 MG ONCE PO
     Route: 048
     Dates: start: 20060209, end: 20060209
  2. ASPIRIN [Suspect]
     Indication: TOOTHACHE
     Dosage: DF ONCE PO
     Route: 048
     Dates: start: 20060210, end: 20060210
  3. ACETAMINOPHEN [Suspect]
     Indication: TOOTHACHE
     Dosage: DF ONCE PO
     Route: 048
     Dates: start: 20060210, end: 20060210
  4. ADALAT CC [Concomitant]
  5. RAMIPRIL [Concomitant]

REACTIONS (5)
  - DIZZINESS [None]
  - FEELING HOT [None]
  - GASTROINTESTINAL HAEMORRHAGE [None]
  - HYPERHIDROSIS [None]
  - TREMOR [None]
